FAERS Safety Report 4732524-1 (Version None)
Quarter: 2005Q3

REPORT INFORMATION
  Report Type: 
  Country: None (occurrence: None)
  Receive Date: 20050801
  Receipt Date: 20050801
  Transmission Date: 20060218
  Serious: Yes (Life-Threatening, Hospitalization)
  Sender: FDA-Public Use
  Company Number: None

PATIENT
  Age: 63 Year
  Sex: Male
  Weight: 118.3888 kg

DRUGS (5)
  1. BACTRIM DS [Suspect]
     Indication: UPPER RESPIRATORY TRACT INFECTION
     Dosage: PO BID X 14 D
     Route: 048
     Dates: start: 20050329
  2. ACE 1 [Concomitant]
  3. ALDESTERON [Concomitant]
  4. ANTAG [Concomitant]
  5. POTASSIUM CHLORIDE [Concomitant]

REACTIONS (9)
  - CONSTIPATION [None]
  - DYSPNOEA [None]
  - DYSPNOEA PAROXYSMAL NOCTURNAL [None]
  - DYSURIA [None]
  - EXERCISE TOLERANCE DECREASED [None]
  - HYPERKALAEMIA [None]
  - ORTHOPNOEA [None]
  - TROPONIN INCREASED [None]
  - WEIGHT INCREASED [None]
